FAERS Safety Report 6268869-6 (Version None)
Quarter: 2009Q3

REPORT INFORMATION
  Report Type: 
  Country: None (occurrence: None)
  Receive Date: 20090715
  Receipt Date: 20090703
  Transmission Date: 20100115
  Serious: Yes (Hospitalization, Other)
  Sender: FDA-Public Use
  Company Number: PHHY2009MX25840

PATIENT
  Sex: Female

DRUGS (3)
  1. DIOVAN HCT [Suspect]
     Indication: HYPERTENSION
     Dosage: 1 TABLET (160/25 MG) PER DAY
     Route: 048
     Dates: start: 20000101, end: 20090604
  2. DIGOXIN [Suspect]
     Indication: CARDIAC FAILURE
     Dosage: UNK
     Dates: start: 20030101
  3. SPIRONOLACTONE [Concomitant]
     Dosage: UNK

REACTIONS (8)
  - BRADYCARDIA [None]
  - CARDIAC FAILURE [None]
  - CHRONIC OBSTRUCTIVE PULMONARY DISEASE [None]
  - DRUG TOXICITY [None]
  - HYPOTENSION [None]
  - PULMONARY OEDEMA [None]
  - RENAL DISORDER [None]
  - RENAL FAILURE ACUTE [None]
